FAERS Safety Report 15403254 (Version 1)
Quarter: 2018Q3

REPORT INFORMATION
  Report Type: Spontaneous
  Country: US (occurrence: US)
  Receive Date: 20180919
  Receipt Date: 20180919
  Transmission Date: 20181010
  Serious: Yes (Other)
  Sender: FDA-Public Use
  Company Number: US-GILEAD-2018-0363597

PATIENT
  Age: 67 Year
  Sex: Male

DRUGS (6)
  1. LIPITOR [Concomitant]
     Active Substance: ATORVASTATIN CALCIUM
  2. RANEXA [Suspect]
     Active Substance: RANOLAZINE
     Indication: ANGINA PECTORIS
     Dosage: 500 UNK, UNK
     Route: 065
     Dates: start: 20180812
  3. NITRO                              /00003201/ [Concomitant]
     Active Substance: NITROGLYCERIN
  4. TOPROL XL [Concomitant]
     Active Substance: METOPROLOL SUCCINATE
  5. ASA [Concomitant]
     Active Substance: ASPIRIN
  6. MULTI VITAMIN                      /08408501/ [Concomitant]
     Active Substance: VITAMINS

REACTIONS (3)
  - Syncope [Unknown]
  - Migraine [Unknown]
  - Dizziness [Unknown]
